FAERS Safety Report 21294848 (Version 1)
Quarter: 2022Q3

REPORT INFORMATION
  Report Type: Report from Study
  Country: CA (occurrence: None)
  Receive Date: 20220905
  Receipt Date: 20220905
  Transmission Date: 20221026
  Serious: Yes (Death, Other)
  Sender: FDA-Public Use
  Company Number: 2022A305029

PATIENT
  Sex: Male

DRUGS (5)
  1. FASENRA [Suspect]
     Active Substance: BENRALIZUMAB
     Indication: Asthma
     Route: 058
     Dates: start: 20190424
  2. VENTOLIN [Concomitant]
     Active Substance: ALBUTEROL SULFATE
  3. GLYCOPYRRONIUM\INDACATEROL [Concomitant]
     Active Substance: GLYCOPYRRONIUM\INDACATEROL
     Dosage: 110MCG/50MCG
  4. ASMANEX [Concomitant]
     Active Substance: MOMETASONE FUROATE
  5. PREDNISONE [Concomitant]
     Active Substance: PREDNISONE

REACTIONS (1)
  - Death [Fatal]
